FAERS Safety Report 6937149-5 (Version None)
Quarter: 2010Q3

REPORT INFORMATION
  Report Type: 
  Country: None (occurrence: None)
  Receive Date: 20100823
  Receipt Date: 20100813
  Transmission Date: 20110219
  Serious: Yes (Hospitalization)
  Sender: FDA-Public Use
  Company Number: A0798333A

PATIENT
  Sex: Male
  Weight: 135 kg

DRUGS (6)
  1. AVANDIA [Suspect]
     Indication: DIABETES MELLITUS
     Dosage: 4MG TWICE PER DAY
     Route: 065
     Dates: end: 20080318
  2. AVANDAMET [Suspect]
     Indication: DIABETES MELLITUS
  3. ALTACE [Concomitant]
  4. GLUCOPHAGE [Concomitant]
  5. LANTUS [Concomitant]
  6. NAPROSYN [Concomitant]

REACTIONS (4)
  - ANGINA UNSTABLE [None]
  - CORONARY ARTERIAL STENT INSERTION [None]
  - HEART RATE INCREASED [None]
  - MYOCARDIAL INFARCTION [None]
